FAERS Safety Report 23167958 (Version 1)
Quarter: 2023Q4

REPORT INFORMATION
  Report Type: Report from Study
  Country: NL (occurrence: NL)
  Receive Date: 20231109
  Receipt Date: 20231109
  Transmission Date: 20240109
  Serious: Yes (Death, Other)
  Sender: FDA-Public Use
  Company Number: NL-VER-202300085

PATIENT
  Age: 71 Year
  Sex: Male

DRUGS (3)
  1. TRIPTORELIN PAMOATE [Suspect]
     Active Substance: TRIPTORELIN PAMOATE
     Indication: Prostate cancer
     Dosage: 22.5 MG, 1 X PER 6 MONTHS, ZINR: 15533212 (22.5 MG,6 M
     Route: 030
     Dates: start: 20220512, end: 20220512
  2. TRIPTORELIN PAMOATE [Suspect]
     Active Substance: TRIPTORELIN PAMOATE
     Indication: Prostate cancer
     Dosage: 22.5 MG, 1 X PER 6 MONTHS, ZINR: 15533212 (22.5 MG,6 M)
     Route: 030
     Dates: start: 20230516, end: 20230516
  3. TRIPTORELIN PAMOATE [Suspect]
     Active Substance: TRIPTORELIN PAMOATE
     Indication: Prostate cancer
     Dosage: 22.5 MG, 1 X PER 6 MONTHS, ZINR: 15533212 (22.5 MG,6 M)
     Route: 030
     Dates: start: 20221117, end: 20221117

REACTIONS (1)
  - Death [Fatal]

NARRATIVE: CASE EVENT DATE: 20230929
